FAERS Safety Report 5346627-4 (Version None)
Quarter: 2007Q2

REPORT INFORMATION
  Report Type: 
  Country: None (occurrence: None)
  Receive Date: 20070605
  Receipt Date: 20070528
  Transmission Date: 20071010
  Serious: Yes (Hospitalization, Other)
  Sender: FDA-Public Use
  Company Number: AR-PFIZER INC-2007035568

PATIENT
  Sex: Male
  Weight: 75 kg

DRUGS (2)
  1. SUTENT [Suspect]
     Indication: RENAL CELL CARCINOMA STAGE UNSPECIFIED
     Route: 048
  2. AMIODARONE HCL [Concomitant]
     Route: 048

REACTIONS (7)
  - AGEUSIA [None]
  - CONVULSION [None]
  - FATIGUE [None]
  - HYPERTENSION [None]
  - ISCHAEMIC STROKE [None]
  - URINARY TRACT INFECTION [None]
  - WHITE BLOOD CELL COUNT DECREASED [None]
